FAERS Safety Report 15389605 (Version 2)
Quarter: 2018Q3

REPORT INFORMATION
  Report Type: Spontaneous
  Country: US (occurrence: US)
  Receive Date: 20180917
  Receipt Date: 20180917
  Transmission Date: 20181010
  Serious: No
  Sender: FDA-Public Use
  Company Number: US-LUPIN PHARMACEUTICALS INC.-2018-02170

PATIENT
  Age: 76 Year
  Sex: Female
  Weight: 63.49 kg

DRUGS (1)
  1. CEFUROXIME AXETIL TABLETS USP, 250 MG [Suspect]
     Active Substance: CEFUROXIME AXETIL
     Indication: CYSTITIS
     Dosage: 250 MG, QD
     Route: 048
     Dates: start: 20180304, end: 20180305

REACTIONS (1)
  - Urticaria [Recovered/Resolved]

NARRATIVE: CASE EVENT DATE: 20180305
